FAERS Safety Report 9386812 (Version 2)
Quarter: 2013Q3

REPORT INFORMATION
  Report Type: Spontaneous
  Country: BR (occurrence: None)
  Receive Date: 20130702
  Receipt Date: 20130905
  Transmission Date: 20140515
  Serious: Yes (Other)
  Sender: FDA-Public Use
  Company Number: VAL_02602_2013

PATIENT
  Age: 73 Year
  Sex: Male

DRUGS (3)
  1. LOTENSIN [Suspect]
     Indication: BLOOD PRESSURE INADEQUATELY CONTROLLED
     Dosage: HALF TABLET IN THE MORNING AND HALF TABLET AT NIGHT
     Route: 048
     Dates: start: 201304, end: 201304
  2. ROXFLAN [Concomitant]
  3. AAS [Concomitant]

REACTIONS (1)
  - Cerebrovascular accident [None]
